FAERS Safety Report 18889612 (Version 2)
Quarter: 2021Q1

REPORT INFORMATION
  Report Type: Spontaneous
  Country: US (occurrence: US)
  Receive Date: 20210213
  Receipt Date: 20210303
  Transmission Date: 20210420
  Serious: No
  Sender: FDA-Public Use
  Company Number: US-TEVA-2021-US-1877966

PATIENT
  Sex: Female

DRUGS (2)
  1. METOPROLOL ACTAVIS/TEVA [Suspect]
     Active Substance: METOPROLOL TARTRATE
     Indication: HEART RATE INCREASED
     Dosage: OBLONG SHAPE AND IT IS SCORED
     Route: 065
     Dates: start: 2010
  2. TOPRAL GENERIC [METOPROLOL] [Suspect]
     Active Substance: METOPROLOL
     Indication: HEART RATE INCREASED
     Route: 065

REACTIONS (6)
  - Illness [Unknown]
  - Blood pressure systolic decreased [Unknown]
  - Drug ineffective [Unknown]
  - Atrial tachycardia [Recovered/Resolved]
  - Product substitution issue [Unknown]
  - Migraine [Recovered/Resolved]
